FAERS Safety Report 8921146 (Version 1)
Quarter: 2012Q4

REPORT INFORMATION
  Report Type: 
  Country: US (occurrence: US)
  Receive Date: 20121121
  Receipt Date: 20121121
  Transmission Date: 20130627
  Serious: Yes (Hospitalization)
  Sender: FDA-Public Use
  Company Number: US-PFIZER INC-2012291011

PATIENT
  Age: 50 Year
  Sex: Female
  Weight: 77.1 kg

DRUGS (8)
  1. NORVASC [Suspect]
     Indication: BLOOD PRESSURE HIGH
     Dosage: 5 mg, daily
     Dates: start: 2004
  2. NORVASC [Suspect]
     Dosage: 10 mg, daily
  3. METOPROLOL TARTRATE [Suspect]
     Indication: BLOOD PRESSURE HIGH
     Dosage: 25 mg, 2x/day
     Dates: start: 2010
  4. ACETYLSALICYLIC ACID [Suspect]
     Indication: BLOOD PRESSURE HIGH
     Dosage: 81 mg, daily
     Dates: start: 2003
  5. HYDROCHLOROTHIAZIDE\TRIAMTERENE [Suspect]
     Indication: BLOOD PRESSURE HIGH
     Dosage: 37.5/25 mg, Unk
     Dates: start: 2005
  6. RANITIDINE HYDROCHLORIDE [Concomitant]
     Indication: ACID REFLUX (ESOPHAGEAL)
     Dosage: 150 mg, UNK
  7. CETIRIZINE HYDROCHLORIDE [Concomitant]
     Indication: ALLERGY
     Dosage: 10 mg, as needed
  8. CALCIUM CARBONATE [Concomitant]
     Dosage: UNK

REACTIONS (6)
  - Blood pressure inadequately controlled [Recovered/Resolved]
  - Oedema peripheral [Unknown]
  - Joint swelling [Unknown]
  - Pain [Recovered/Resolved]
  - Blood thyroid stimulating hormone abnormal [Unknown]
  - Anaemia [Unknown]
